FAERS Safety Report 11490519 (Version 10)
Quarter: 2017Q1

REPORT INFORMATION
  Report Type: Spontaneous
  Country: US (occurrence: US)
  Receive Date: 20150910
  Receipt Date: 20170210
  Transmission Date: 20170428
  Serious: Yes (Hospitalization, Other)
  Sender: FDA-Public Use
  Company Number: US-PFIZER INC-2015299000

PATIENT
  Age: 78 Year
  Sex: Male
  Weight: 83.9 kg

DRUGS (6)
  1. REVATIO [Suspect]
     Active Substance: SILDENAFIL CITRATE
     Indication: PULMONARY ARTERIAL HYPERTENSION
     Dosage: 2X/DAY
     Dates: start: 2009
  2. REVATIO [Suspect]
     Active Substance: SILDENAFIL CITRATE
     Indication: LUNG DISORDER
     Dosage: 20 MG, 3X/DAY
     Route: 048
     Dates: start: 200908
  3. TRACLEER [Concomitant]
     Active Substance: BOSENTAN
     Indication: LUNG DISORDER
     Dosage: UNK
     Dates: start: 2000
  4. TRACLEER [Concomitant]
     Active Substance: BOSENTAN
     Dosage: 125 MG, 2X/DAY
     Dates: start: 2009
  5. REVATIO [Suspect]
     Active Substance: SILDENAFIL CITRATE
     Dosage: UNK
     Dates: start: 2010
  6. TAVIST-D [Concomitant]
     Active Substance: CLEMASTINE FUMARATE\PHENYLPROPANOLAMINE HYDROCHLORIDE
     Dosage: UNK

REACTIONS (10)
  - Cardiac failure congestive [Unknown]
  - Somnolence [Unknown]
  - Anaemia [Unknown]
  - Oropharyngeal pain [Recovering/Resolving]
  - Asthenia [Unknown]
  - Gingival disorder [Not Recovered/Not Resolved]
  - Toothache [Recovered/Resolved]
  - Fatigue [Unknown]
  - Malaise [Unknown]
  - Myocardial infarction [Unknown]

NARRATIVE: CASE EVENT DATE: 2016
